FAERS Safety Report 16405948 (Version 2)
Quarter: 2019Q3

REPORT INFORMATION
  Report Type: Spontaneous
  Country: MX (occurrence: MX)
  Receive Date: 20190607
  Receipt Date: 20190722
  Transmission Date: 20191004
  Serious: Yes (Other)
  Sender: FDA-Public Use
  Company Number: MX-ASTRAZENECA-2019SE82445

PATIENT
  Age: 603 Month
  Sex: Female
  Weight: 74 kg

DRUGS (7)
  1. NITROFURANTOIN. [Concomitant]
     Active Substance: NITROFURANTOIN
     Indication: URINARY TRACT INFECTION
     Route: 048
     Dates: start: 20190701, end: 20190708
  2. BELLAFEM (VITAMINS NOS) [Interacting]
     Active Substance: VITAMINS
     Indication: MULTI-VITAMIN DEFICIENCY
     Route: 048
  3. GLUCOPHAGE [Interacting]
     Active Substance: METFORMIN HYDROCHLORIDE
     Indication: TYPE 2 DIABETES MELLITUS
     Route: 048
     Dates: start: 2018
  4. URSOFALK [Concomitant]
     Active Substance: URSODIOL
     Indication: HEPATIC STEATOSIS
     Route: 048
     Dates: start: 20190701
  5. CONTROLIP TRILIPIX [Interacting]
     Active Substance: FENOFIBRATE
     Indication: BLOOD CHOLESTEROL INCREASED
     Route: 048
     Dates: start: 201902, end: 201905
  6. FORXIGA [Suspect]
     Active Substance: DAPAGLIFLOZIN
     Indication: TYPE 2 DIABETES MELLITUS
     Route: 048
     Dates: start: 201811
  7. CALTRATE [Concomitant]
     Active Substance: CALCIUM CARBONATE
     Indication: BONE DISORDER
     Dosage: DAILY
     Route: 048
     Dates: start: 20190701

REACTIONS (7)
  - Irritable bowel syndrome [Not Recovered/Not Resolved]
  - Cholecystitis [Not Recovered/Not Resolved]
  - Blood triglycerides increased [Recovered/Resolved]
  - Urinary tract infection [Not Recovered/Not Resolved]
  - Hepatic steatosis [Unknown]
  - Drug interaction [Unknown]
  - Blood cholesterol increased [Recovered/Resolved]

NARRATIVE: CASE EVENT DATE: 201902
